FAERS Safety Report 20419367 (Version 1)
Quarter: 2022Q1

REPORT INFORMATION
  Report Type: Spontaneous
  Country: DE (occurrence: DE)
  Receive Date: 20220203
  Receipt Date: 20220203
  Transmission Date: 20220423
  Serious: Yes (Other)
  Sender: FDA-Public Use
  Company Number: None

PATIENT
  Age: 56 Year
  Sex: Male

DRUGS (8)
  1. GEMCITABINE [Suspect]
     Active Substance: GEMCITABINE
     Indication: Metastases to lung
  2. GEMCITABINE [Suspect]
     Active Substance: GEMCITABINE
     Indication: Leiomyosarcoma metastatic
  3. GEMCITABINE [Suspect]
     Active Substance: GEMCITABINE
     Indication: Metastases to bone
  4. GEMCITABINE [Suspect]
     Active Substance: GEMCITABINE
     Indication: Metastases to liver
  5. DOCETAXEL [Concomitant]
     Active Substance: DOCETAXEL
     Indication: Metastases to liver
  6. DOCETAXEL [Concomitant]
     Active Substance: DOCETAXEL
     Indication: Metastases to lung
  7. DOCETAXEL [Concomitant]
     Active Substance: DOCETAXEL
     Indication: Leiomyosarcoma metastatic
  8. DOCETAXEL [Concomitant]
     Active Substance: DOCETAXEL
     Indication: Metastases to bone

REACTIONS (3)
  - Haematotoxicity [Unknown]
  - Neutropenia [Unknown]
  - Off label use [Unknown]
